FAERS Safety Report 5857466-X (Version None)
Quarter: 2008Q3

REPORT INFORMATION
  Report Type: 
  Country: None (occurrence: None)
  Receive Date: 20080826
  Receipt Date: 20080818
  Transmission Date: 20090109
  Serious: Yes (Other)
  Sender: FDA-Public Use
  Company Number: US-BAYER-200822127NA

PATIENT
  Age: 26 Year
  Sex: Female
  Weight: 76 kg

DRUGS (3)
  1. MIRENA [Suspect]
     Indication: CONTRACEPTION
     Route: 015
     Dates: start: 20080303
  2. CARBATROL [Concomitant]
     Indication: CONVULSION
     Dosage: TOTAL DAILY DOSE: 800 MG  UNIT DOSE: 400 MG
     Route: 048
  3. FOLIC ACID [Concomitant]
     Indication: DRUG USE FOR UNKNOWN INDICATION
     Dosage: TOTAL DAILY DOSE: 4 MG
     Route: 048

REACTIONS (5)
  - EMOTIONAL DISTRESS [None]
  - GRAND MAL CONVULSION [None]
  - PROCEDURAL NAUSEA [None]
  - PROCEDURAL PAIN [None]
  - VIRAL INFECTION [None]
